FAERS Safety Report 4914718-5 (Version None)
Quarter: 2006Q1

REPORT INFORMATION
  Report Type: 
  Country: None (occurrence: None)
  Receive Date: 20060216
  Receipt Date: 20050513
  Transmission Date: 20060701
  Serious: Yes (Life-Threatening, Hospitalization)
  Sender: FDA-Public Use
  Company Number: JP-NOVOPROD-244143

PATIENT
  Age: 19 Year
  Sex: Female
  Weight: 49 kg

DRUGS (4)
  1. NORDITROPIN SIMPLEXX [Suspect]
     Indication: GROWTH HORMONE DEFICIENCY
     Dosage: 175 MG/KG/WEEK
     Route: 058
     Dates: start: 19980901, end: 20030201
  2. NORLUTEN [Concomitant]
     Dosage: 1 TAB, QD
     Route: 048
     Dates: start: 20030325
  3. PREMARIN [Concomitant]
     Dosage: 1 TAB, QD
     Route: 048
     Dates: start: 20010203
  4. DESMOPRESSIN ACETATE [Concomitant]
     Dosage: UNK, UNK
     Dates: start: 19951201

REACTIONS (2)
  - BRAIN NEOPLASM [None]
  - DISEASE RECURRENCE [None]
